FAERS Safety Report 6131214-0 (Version None)
Quarter: 2009Q1

REPORT INFORMATION
  Report Type: 
  Country: None (occurrence: None)
  Receive Date: 20090325
  Receipt Date: 20090317
  Transmission Date: 20090719
  Serious: Yes (Other)
  Sender: FDA-Public Use
  Company Number: US-ELI_LILLY_AND_COMPANY-US200903004358

PATIENT
  Age: 71 Year
  Sex: Male

DRUGS (8)
  1. HUMULIN N [Suspect]
  2. HUMULIN R [Suspect]
  3. MORPHINE [Concomitant]
  4. FENTANYL-25 [Concomitant]
  5. VALIUM [Concomitant]
  6. TEMAZEPAM [Concomitant]
  7. LASIX [Concomitant]
  8. SLOW-K [Concomitant]

REACTIONS (10)
  - BLOOD GLUCOSE DECREASED [None]
  - BLOOD GLUCOSE INCREASED [None]
  - CEREBROVASCULAR ACCIDENT [None]
  - CONVULSION [None]
  - DISORIENTATION [None]
  - MEMORY IMPAIRMENT [None]
  - PLATELET COUNT DECREASED [None]
  - TOOTH INFECTION [None]
  - VISUAL ACUITY REDUCED [None]
  - WHITE BLOOD CELL COUNT DECREASED [None]
